FAERS Safety Report 12947951 (Version 1)
Quarter: 2016Q4

REPORT INFORMATION
  Report Type: Spontaneous
  Country: CN (occurrence: CN)
  Receive Date: 20161116
  Receipt Date: 20161116
  Transmission Date: 20170207
  Serious: Yes (Hospitalization, Other)
  Sender: FDA-Public Use
  Company Number: CN-NORTHSTAR HEALTHCARE HOLDINGS-CN-2016NSR001877

PATIENT
  Age: 61 Year
  Sex: Male

DRUGS (1)
  1. ALLOPURINOL. [Suspect]
     Active Substance: ALLOPURINOL
     Indication: PRODUCT USED FOR UNKNOWN INDICATION
     Dosage: UNK

REACTIONS (5)
  - Acute hepatic failure [Unknown]
  - Decreased appetite [Unknown]
  - Jaundice [Unknown]
  - Drug-induced liver injury [Unknown]
  - Fatigue [Unknown]
